FAERS Safety Report 18614114 (Version 1)
Quarter: 2020Q4

REPORT INFORMATION
  Report Type: Report from Study
  Country: US (occurrence: US)
  Receive Date: 20201214
  Receipt Date: 20201214
  Transmission Date: 20210114
  Serious: Yes (Other)
  Sender: FDA-Public Use
  Company Number: US-INCYTE CORPORATION-2020IN012315

PATIENT

DRUGS (1)
  1. JAKAFI [Suspect]
     Active Substance: RUXOLITINIB
     Indication: POLYCYTHAEMIA VERA
     Dosage: 15 MILLIGRAM
     Route: 048

REACTIONS (6)
  - Lung perforation [Unknown]
  - Cerebrovascular accident [Recovered/Resolved]
  - Accident [Unknown]
  - Paraesthesia [Unknown]
  - Ill-defined disorder [Unknown]
  - Rib fracture [Unknown]
